FAERS Safety Report 9904468 (Version 2)
Quarter: 2014Q2

REPORT INFORMATION
  Report Type: Spontaneous
  Country: IT (occurrence: IT)
  Receive Date: 20140218
  Receipt Date: 20140624
  Transmission Date: 20141212
  Serious: Yes (Hospitalization)
  Sender: FDA-Public Use
  Company Number: IT-ROCHE-1348832

PATIENT
  Age: 82 Year
  Sex: Female

DRUGS (5)
  1. ROCEFIN [Suspect]
     Indication: INFECTION
     Route: 030
     Dates: start: 20131213, end: 20131213
  2. RAMIPRIL [Concomitant]
     Route: 065
  3. CARDICOR [Concomitant]
  4. CARDIOASPIRIN [Concomitant]
  5. LASIX [Concomitant]

REACTIONS (6)
  - Throat tightness [Recovering/Resolving]
  - Rash [Recovering/Resolving]
  - Pruritus [Recovering/Resolving]
  - Paraesthesia [Recovering/Resolving]
  - Oedema [Recovering/Resolving]
  - Oral discomfort [Recovering/Resolving]
